FAERS Safety Report 17546178 (Version 1)
Quarter: 2020Q1

REPORT INFORMATION
  Report Type: Spontaneous
  Country: US (occurrence: US)
  Receive Date: 20200316
  Receipt Date: 20200316
  Transmission Date: 20200409
  Serious: No
  Sender: FDA-Public Use
  Company Number: None

PATIENT
  Age: 53 Year
  Sex: Female
  Weight: 53.1 kg

DRUGS (1)
  1. DELSYM COUGH PLUS CHEST CONGESTION DM [Suspect]
     Active Substance: DEXTROMETHORPHAN HYDROBROMIDE\GUAIFENESIN
     Indication: COUGH
     Dosage: ?          QUANTITY:20 ML DOSE;?
     Route: 048
     Dates: start: 20200315, end: 20200315

REACTIONS (4)
  - Hypoaesthesia oral [None]
  - Product quality issue [None]
  - Pharyngeal hypoaesthesia [None]
  - Product taste abnormal [None]

NARRATIVE: CASE EVENT DATE: 20200315
